FAERS Safety Report 6526248-8 (Version None)
Quarter: 2009Q4

REPORT INFORMATION
  Report Type: 
  Country: None (occurrence: None)
  Receive Date: 20091228
  Receipt Date: 20091214
  Transmission Date: 20100525
  Serious: Yes (Other)
  Sender: FDA-Public Use
  Company Number: 2009S1008971

PATIENT
  Sex: Female

DRUGS (5)
  1. PHOSPHOSODA FLAVOR NOT SPECIFIED [Suspect]
     Indication: COLONOSCOPY
     Dosage: PO
     Route: 048
     Dates: start: 20061116, end: 20061116
  2. FLEET ENEMA (SODIUM PHOSPHATE) [Suspect]
     Indication: COLONOSCOPY
     Dosage: RTL
     Route: 054
     Dates: start: 20061101
  3. DIURETICS [Concomitant]
  4. ANGIOTENSIN II [Concomitant]
  5. ANTAGONISTS [Concomitant]

REACTIONS (1)
  - RENAL FAILURE [None]
